FAERS Safety Report 22143123 (Version 3)
Quarter: 2023Q2

REPORT INFORMATION
  Report Type: Spontaneous
  Country: US (occurrence: US)
  Receive Date: 20230327
  Receipt Date: 20230512
  Transmission Date: 20230721
  Serious: Yes (Disabling, Other)
  Sender: FDA-Public Use
  Company Number: US-PFIZER INC-202300128755

PATIENT
  Age: 53 Year
  Sex: Female
  Weight: 88.9 kg

DRUGS (1)
  1. LEVOXYL [Suspect]
     Active Substance: LEVOTHYROXINE SODIUM
     Indication: Thyroid hormone replacement therapy
     Dosage: 137 UG, 1X/DAY
     Route: 048

REACTIONS (10)
  - Fatigue [Recovering/Resolving]
  - Drug ineffective [Unknown]
  - Product storage error [Unknown]
  - Feeling abnormal [Unknown]
  - Brain fog [Unknown]
  - Palpitations [Not Recovered/Not Resolved]
  - Malaise [Not Recovered/Not Resolved]
  - Weight increased [Not Recovered/Not Resolved]
  - Asthenia [Unknown]
  - Poor quality sleep [Unknown]

NARRATIVE: CASE EVENT DATE: 20230101
